FAERS Safety Report 16271260 (Version 1)
Quarter: 2019Q2

REPORT INFORMATION
  Report Type: Report from Study
  Country: US (occurrence: US)
  Receive Date: 20190503
  Receipt Date: 20190503
  Transmission Date: 20190711
  Serious: Yes (Death)
  Sender: FDA-Public Use
  Company Number: US-PFIZER INC-2019095104

PATIENT
  Age: 68 Year
  Sex: Male

DRUGS (2)
  1. SUTENT [Suspect]
     Active Substance: SUNITINIB MALATE
     Indication: RENAL CANCER
     Dosage: 50 MG, CYCLIC (DAILY FOR 2 WEEKS ON, 1 WEEK OFF)
     Route: 048
     Dates: start: 20190222, end: 2019
  2. SUTENT [Suspect]
     Active Substance: SUNITINIB MALATE
     Dosage: 50 MG, CYCLIC (MONDAY/WEDNESDAY/FRIDAY FOR 2 WEEKS, THEN OFF 7 DAYS)
     Route: 048
     Dates: start: 20190328

REACTIONS (3)
  - Decreased appetite [Unknown]
  - Palmar-plantar erythrodysaesthesia syndrome [Recovered/Resolved]
  - Death [Fatal]

NARRATIVE: CASE EVENT DATE: 2019
